FAERS Safety Report 10935442 (Version 1)
Quarter: 2015Q1

REPORT INFORMATION
  Report Type: Spontaneous
  Country: US (occurrence: US)
  Receive Date: 20150320
  Receipt Date: 20150320
  Transmission Date: 20150721
  Serious: Yes (Hospitalization, Other)
  Sender: FDA-Public Use
  Company Number: US-GLAXOSMITHKLINE-US2015GSK034249

PATIENT
  Age: 25 Year
  Sex: Male

DRUGS (1)
  1. ONDANSETRON [Suspect]
     Active Substance: ONDANSETRON
     Indication: NAUSEA
     Dosage: UP TO 40 TABLETS/ DAY

REACTIONS (9)
  - Posterior reversible encephalopathy syndrome [Recovered/Resolved]
  - Blindness [Unknown]
  - Brain oedema [Unknown]
  - Headache [Unknown]
  - Cerebral haemorrhage [Unknown]
  - Leukoencephalopathy [Recovered/Resolved]
  - Intracranial pressure increased [Unknown]
  - Angiopathy [Unknown]
  - Neurological decompensation [Unknown]
